FAERS Safety Report 4448017-5 (Version None)
Quarter: 2004Q3

REPORT INFORMATION
  Report Type: 
  Country: None (occurrence: None)
  Receive Date: 20040817
  Receipt Date: 20031119
  Transmission Date: 20050211
  Serious: Yes (Hospitalization)
  Sender: FDA-Public Use
  Company Number: MEDI-0001144(0)

PATIENT
  Age: 12 Month
  Sex: Female
  Weight: 9.0719 kg

DRUGS (1)
  1. SYNAGIS [Suspect]
     Indication: ANTIVIRAL PROPHYLAXIS
     Dosage: 140 MG, 1 IN 30 D, INTRA-MUSCULAR
     Route: 030
     Dates: start: 20031015, end: 20031015

REACTIONS (3)
  - BRONCHIOLITIS [None]
  - RESPIRATORY RATE INCREASED [None]
  - RESPIRATORY SYNCYTIAL VIRUS INFECTION [None]
